FAERS Safety Report 5775267-8 (Version None)
Quarter: 2008Q2

REPORT INFORMATION
  Report Type: 
  Country: None (occurrence: None)
  Receive Date: 20080612
  Receipt Date: 20080528
  Transmission Date: 20081010
  Serious: Yes (Hospitalization)
  Sender: FDA-Public Use
  Company Number: 2008001245

PATIENT
  Age: 64 Year
  Sex: Male
  Weight: 49 kg

DRUGS (5)
  1. ERLOTINIB (EERLOTINIB) (TABLET) (ERLOTINIB) [Suspect]
     Indication: NON-SMALL CELL LUNG CANCER
     Dosage: 150 MG, QD, ORAL
     Route: 048
     Dates: start: 20080418
  2. SU11248 OR PLACEBO [Suspect]
     Dosage: 37.5 MG, QD
  3. METOCLOPRAMIDE [Concomitant]
  4. LOPERAMIDE [Concomitant]
  5. KYTRIL [Concomitant]

REACTIONS (4)
  - ANAEMIA [None]
  - ORAL INTAKE REDUCED [None]
  - PLATELET COUNT INCREASED [None]
  - WHITE BLOOD CELL COUNT INCREASED [None]
